FAERS Safety Report 5134792-3 (Version None)
Quarter: 2006Q4

REPORT INFORMATION
  Report Type: 
  Country: None (occurrence: None)
  Receive Date: 20061025
  Receipt Date: 20061017
  Transmission Date: 20070319
  Serious: Yes (Death)
  Sender: FDA-Public Use
  Company Number: GB-MERCK-0610GBR00139

PATIENT
  Age: 71 Year
  Sex: Male

DRUGS (1)
  1. CANCIDAS [Suspect]
     Route: 065

REACTIONS (2)
  - MULTI-ORGAN FAILURE [None]
  - SYSTEMIC INFLAMMATORY RESPONSE SYNDROME [None]
